FAERS Safety Report 10607516 (Version 1)
Quarter: 2014Q4

REPORT INFORMATION
  Report Type: Spontaneous
  Country: US (occurrence: None)
  Receive Date: 20141124
  Receipt Date: 20141124
  Transmission Date: 20150529
  Serious: Yes (Hospitalization)
  Sender: FDA-Public Use
  Company Number: None

PATIENT
  Age: 38 Year
  Sex: Female
  Weight: 65.6 kg

DRUGS (6)
  1. MORPHINE [Suspect]
     Active Substance: MORPHINE
     Indication: PROCEDURAL PAIN
     Dosage: OTO
     Route: 042
  2. ATIVAN [Suspect]
     Active Substance: LORAZEPAM
     Indication: ANXIETY
  3. VITAMIN D [Concomitant]
     Active Substance: CHOLECALCIFEROL
  4. MORPHINE [Suspect]
     Active Substance: MORPHINE
     Dosage: OTO
     Route: 042
  5. DILAUDID [Suspect]
     Active Substance: HYDROMORPHONE HYDROCHLORIDE
     Indication: PROCEDURAL PAIN
     Dosage: OTO
     Route: 042
  6. MYRBETRIQ ORAL CONTRACEPTIVE [Concomitant]

REACTIONS (5)
  - Heart rate increased [None]
  - Delirium [None]
  - Stress [None]
  - Conversion disorder [None]
  - Unresponsive to stimuli [None]

NARRATIVE: CASE EVENT DATE: 20140519
